FAERS Safety Report 5129101-X (Version None)
Quarter: 2006Q4

REPORT INFORMATION
  Report Type: 
  Country: None (occurrence: None)
  Receive Date: 20061016
  Receipt Date: 20061016
  Transmission Date: 20070319
  Serious: Yes (Life-Threatening, Other)
  Sender: FDA-Public Use
  Company Number: None

PATIENT
  Sex: Male
  Weight: 63.5036 kg

DRUGS (1)
  1. REMICADE [Suspect]
     Indication: COLITIS
     Dosage: NORMAL INFUSSION 2 DOSES IN TOTAL IV DRIP
     Route: 041
     Dates: start: 20060224, end: 20060308

REACTIONS (3)
  - ABSCESS [None]
  - IMMUNE SYSTEM DISORDER [None]
  - PNEUMONIA [None]
